FAERS Safety Report 9898875 (Version 1)
Quarter: 2014Q1

REPORT INFORMATION
  Report Type: Spontaneous
  Country: US (occurrence: US)
  Receive Date: 20140214
  Receipt Date: 20140214
  Transmission Date: 20141002
  Serious: Yes (Hospitalization)
  Sender: FDA-Public Use
  Company Number: US-ASTRAZENECA-2014SE09281

PATIENT
  Age: 42 Year
  Sex: Male

DRUGS (3)
  1. BRILINTA [Suspect]
     Indication: ACUTE MYOCARDIAL INFARCTION
     Route: 048
     Dates: start: 20140201, end: 20140204
  2. CARDIENE [Concomitant]
     Route: 042
  3. OTHER MEDICATIONS [Concomitant]

REACTIONS (2)
  - Atrioventricular block second degree [Unknown]
  - Dizziness [Unknown]
